FAERS Safety Report 6651029-4 (Version None)
Quarter: 2010Q1

REPORT INFORMATION
  Report Type: 
  Country: None (occurrence: None)
  Receive Date: 20100322
  Receipt Date: 20100308
  Transmission Date: 20100710
  Serious: Yes (Disabling)
  Sender: FDA-Public Use
  Company Number: 004238

PATIENT
  Age: 89 Year
  Sex: Male
  Weight: 52.7 kg

DRUGS (13)
  1. MACUGEN [Suspect]
     Dates: start: 20081101
  2. AMLODIPINE [Concomitant]
  3. MICARDIS [Concomitant]
  4. LASIX [Concomitant]
  5. LIPITOR [Concomitant]
  6. CHLORMADINONE ACETATE TAB [Concomitant]
  7. TAMSULOSIN HYDROCHLORIDE [Concomitant]
  8. MITIGLINIDE (MITIGLINIDE) [Concomitant]
  9. VOGLIBOSE (VOGLIBOSE) [Concomitant]
  10. LIDOCANIE HYDROCHLORIDE (LIDOCAINE HYDROCHLORIDE) [Concomitant]
  11. FLUMARIN (FLOMOXEF SODIUM) [Concomitant]
  12. PANIMYCIN (DIBEKACIN SULFATE) [Concomitant]
  13. GATIFLOXACIN [Concomitant]

REACTIONS (2)
  - ISCHAEMIA [None]
  - OCULAR HYPERTENSION [None]
